FAERS Safety Report 16627120 (Version 1)
Quarter: 2019Q3

REPORT INFORMATION
  Report Type: Spontaneous
  Country: DE (occurrence: DE)
  Receive Date: 20190724
  Receipt Date: 20190724
  Transmission Date: 20191004
  Serious: Yes (Death, Other)
  Sender: FDA-Public Use
  Company Number: DE-ALVOGEN-2019-ALVOGEN-100754

PATIENT
  Age: 17 Year
  Sex: Male
  Weight: 105 kg

DRUGS (4)
  1. FENTANYL. [Suspect]
     Active Substance: FENTANYL
     Indication: PRODUCT USED FOR UNKNOWN INDICATION
     Dosage: THREE FENTANYL PATCHES (EACH 100 MCG/H)
  2. VALSARTAN. [Suspect]
     Active Substance: VALSARTAN
     Indication: PRODUCT USED FOR UNKNOWN INDICATION
     Dosage: VALSARTAN CONCENTRATION 36,200 NG/ML
  3. TILIDINE [Suspect]
     Active Substance: TILIDINE
     Indication: PRODUCT USED FOR UNKNOWN INDICATION
     Dosage: TRIMIPRAMINE 6.1 NG/ML
  4. CITALOPRAM [Suspect]
     Active Substance: CITALOPRAM HYDROBROMIDE
     Indication: PRODUCT USED FOR UNKNOWN INDICATION
     Dosage: CITALOPRAM 427 NG/ML

REACTIONS (5)
  - Brain oedema [Fatal]
  - Pulmonary oedema [Fatal]
  - Toxicity to various agents [Fatal]
  - Prescription drug used without a prescription [Unknown]
  - Urinary retention [Fatal]
